FAERS Safety Report 11528424 (Version 1)
Quarter: 2015Q3

REPORT INFORMATION
  Report Type: Spontaneous
  Country: US (occurrence: US)
  Receive Date: 20150921
  Receipt Date: 20150921
  Transmission Date: 20151125
  Serious: No
  Sender: FDA-Public Use
  Company Number: US-TEVA-556646USA

PATIENT
  Sex: Female

DRUGS (1)
  1. CLONAZEPAM. [Suspect]
     Active Substance: CLONAZEPAM
     Route: 065
     Dates: start: 2014

REACTIONS (3)
  - Confusional state [Unknown]
  - Somnolence [Unknown]
  - Lethargy [Unknown]

NARRATIVE: CASE EVENT DATE: 2014
